FAERS Safety Report 20533861 (Version 5)
Quarter: 2022Q1

REPORT INFORMATION
  Report Type: Report from Study
  Country: CA (occurrence: CA)
  Receive Date: 20220301
  Receipt Date: 20220330
  Transmission Date: 20220423
  Serious: Yes (Other)
  Sender: FDA-Public Use
  Company Number: CA-GILEAD-2021-0563635

PATIENT
  Age: 68 Year
  Sex: Female
  Weight: 61 kg

DRUGS (34)
  1. SACITUZUMAB GOVITECAN [Suspect]
     Active Substance: SACITUZUMAB GOVITECAN
     Indication: Triple negative breast cancer
     Dosage: 610 MG; C1D1-C4D1, DAYS 1 AND 8 OF EACH CYCLE
     Route: 042
     Dates: start: 20211222, end: 20220223
  2. SACITUZUMAB GOVITECAN [Suspect]
     Active Substance: SACITUZUMAB GOVITECAN
     Dosage: C4D8, DAYS 1 AND 8 OF EACH CYCLE
     Route: 042
     Dates: start: 20220309
  3. TYLENOL [Concomitant]
     Active Substance: ACETAMINOPHEN
     Dosage: 650 MG
  4. TYLENOL [Concomitant]
     Active Substance: ACETAMINOPHEN
     Dosage: 1000 MG
     Route: 048
  5. TYLENOL [Concomitant]
     Active Substance: ACETAMINOPHEN
     Dosage: 1000 MG ORAL (PRE-MEDICATION PRIOR TO TRODELVY)
  6. BENADRYL [Concomitant]
     Active Substance: DIPHENHYDRAMINE HYDROCHLORIDE
     Dosage: 25 MG
     Route: 048
  7. FAMOTIDINE [Concomitant]
     Active Substance: FAMOTIDINE
     Dosage: 20 MG
     Route: 048
  8. FAMOTIDINE [Concomitant]
     Active Substance: FAMOTIDINE
     Dosage: 20 MG ORAL  (PRE-MEDICATION PRIOR TO TRODELVY)
  9. FAMOTIDINE [Concomitant]
     Active Substance: FAMOTIDINE
     Dosage: 20 MG ORAL (PRE-MEDICATION PRIOR TO TRODELVY)
  10. FAMOTIDINE [Concomitant]
     Active Substance: FAMOTIDINE
     Dosage: 20 MG PO  (PRE-MEDICATION PRIOR TO TRODELVY)
  11. FAMOTIDINE [Concomitant]
     Active Substance: FAMOTIDINE
     Dosage: 25 MG IV (PRE-MEDICATION PRIOR TO TRODELVY)
  12. FAMOTIDINE [Concomitant]
     Active Substance: FAMOTIDINE
     Dosage: 25 MG IV(PRE-MEDICATION PRIOR TO TRODELVY)
  13. FAMOTIDINE [Concomitant]
     Active Substance: FAMOTIDINE
     Dosage: 25 MG IV (PRE-MEDICATION PRIOR TO TRODELVY)
  14. FAMOTIDINE [Concomitant]
     Active Substance: FAMOTIDINE
     Dosage: 20 MG IV (PRE-MEDICATION PRIOR TO TRODELVY)
  15. DEXAMETHASONE [Concomitant]
     Active Substance: DEXAMETHASONE
     Dosage: 10 MG
     Route: 048
  16. DEXAMETHASONE [Concomitant]
     Active Substance: DEXAMETHASONE
     Dosage: 10 MG ORAL  (PRE-MEDICATION PRIOR TO TRODELVY)
  17. DEXAMETHASONE [Concomitant]
     Active Substance: DEXAMETHASONE
     Dosage: 10 MG ORAL (PRE-MEDICATION PRIOR TO TRODELVY)
  18. DEXAMETHASONE [Concomitant]
     Active Substance: DEXAMETHASONE
     Dosage: 10 MG PO  (PRE-MEDICATION PRIOR TO TRODELVY)
  19. DEXAMETHASONE [Concomitant]
     Active Substance: DEXAMETHASONE
     Dosage: 10 MG PO (PRE-MEDICATION PRIOR TO TRODELVY)
  20. DEXAMETHASONE [Concomitant]
     Active Substance: DEXAMETHASONE
     Dosage: 10 MG PO (PRE-MEDICATION PRIOR TO TRODELVY)
  21. DEXAMETHASONE [Concomitant]
     Active Substance: DEXAMETHASONE
     Dosage: 10 MG PO (PRE-MEDICATION PRIOR TO TRODELVY)
  22. DEXAMETHASONE [Concomitant]
     Active Substance: DEXAMETHASONE
     Dosage: 10 MG PO (PRE-MEDICATION PRIOR TO TRODELVY)
  23. ONDANSETRON [Concomitant]
     Active Substance: ONDANSETRON
     Dosage: 16 MG
     Route: 048
  24. ONDANSETRON [Concomitant]
     Active Substance: ONDANSETRON
     Dosage: 16 MG ORAL (PRE-MEDICATION PRIOR TO TRODELVY)
  25. ONDANSETRON [Concomitant]
     Active Substance: ONDANSETRON
     Dosage: 16 MG PO (PRE-MEDICATION PRIOR TO TRODELVY)
  26. ONDANSETRON [Concomitant]
     Active Substance: ONDANSETRON
     Dosage: 16 MG PO (PRE-MEDICATION PRIOR TO TRODELVY)
  27. ONDANSETRON [Concomitant]
     Active Substance: ONDANSETRON
     Dosage: 16 MG PO (PRE-MEDICATION PRIOR TO TRODELVY)
  28. ONDANSETRON [Concomitant]
     Active Substance: ONDANSETRON
     Dosage: 16 MG PO (PRE-MEDICATION PRIOR TO TRODELVY)
  29. ACETAMINOPHEN\DIPHENHYDRAMINE HYDROCHLORIDE [Concomitant]
     Active Substance: ACETAMINOPHEN\DIPHENHYDRAMINE HYDROCHLORIDE
     Dosage: 650 MG PO (PRE-MEDICATION PRIOR TO TRODELVY)
  30. DIPHENHYDRAMINE [Concomitant]
     Active Substance: DIPHENHYDRAMINE
     Dosage: 25 MG PO (PRE-MEDICATION PRIOR TO TRODELVY)
  31. DIPHENHYDRAMINE [Concomitant]
     Active Substance: DIPHENHYDRAMINE
     Dosage: 25 MG IV (PRE-MEDICATION PRIOR TO TRODELVY)
  32. DIPHENHYDRAMINE [Concomitant]
     Active Substance: DIPHENHYDRAMINE
     Dosage: 25 MG IV (PRE-MEDICATION PRIOR TO TRODELVY)
  33. DIPHENHYDRAMINE [Concomitant]
     Active Substance: DIPHENHYDRAMINE
     Dosage: 25 MG IV (PRE-MEDICATION PRIOR TO TRODELVY)
  34. DIPHENHYDRAMINE [Concomitant]
     Active Substance: DIPHENHYDRAMINE
     Dosage: 25 MG PO (PRE-MEDICATION PRIOR TO TRODELVY)

REACTIONS (16)
  - Diabetes mellitus [Unknown]
  - Oedema [Recovering/Resolving]
  - Gingival pain [Recovering/Resolving]
  - Malaise [Not Recovered/Not Resolved]
  - Somnolence [Recovering/Resolving]
  - Eating disorder [Unknown]
  - Heart rate increased [Recovered/Resolved]
  - Hypertension [Unknown]
  - Pollakiuria [Unknown]
  - Weight fluctuation [Unknown]
  - Stomatitis [Not Recovered/Not Resolved]
  - Pain [Unknown]
  - Constipation [Recovering/Resolving]
  - Fatigue [Unknown]
  - Diarrhoea [Recovered/Resolved]
  - Diarrhoea [Unknown]

NARRATIVE: CASE EVENT DATE: 20220105
